FAERS Safety Report 8125716-5 (Version None)
Quarter: 2012Q1

REPORT INFORMATION
  Report Type: 
  Country: None (occurrence: None)
  Receive Date: 20120209
  Receipt Date: 20120202
  Transmission Date: 20120608
  Serious: Yes (Disabling)
  Sender: FDA-Public Use
  Company Number: US-US-EMD SERONO, INC.-7049896

PATIENT
  Sex: Female

DRUGS (3)
  1. REBIF [Suspect]
     Indication: MULTIPLE SCLEROSIS
     Route: 058
     Dates: start: 20050527
  2. UNSPECIFIED MEDICATION [Concomitant]
  3. REBIF [Suspect]
     Route: 058

REACTIONS (5)
  - HEADACHE [None]
  - INSOMNIA [None]
  - BLINDNESS [None]
  - INJECTION SITE MASS [None]
  - HYPOAESTHESIA [None]
